FAERS Safety Report 13049268 (Version 1)
Quarter: 2016Q4

REPORT INFORMATION
  Report Type: Report from Study
  Country: None (occurrence: US)
  Receive Date: 20161221
  Receipt Date: 20161221
  Transmission Date: 20170207
  Serious: No
  Sender: FDA-Public Use
  Company Number: US-BIOVITRUM-2016US0260

PATIENT
  Age: 55 Year
  Sex: Male

DRUGS (1)
  1. KINERET [Suspect]
     Active Substance: ANAKINRA
     Dosage: 100 MG DAILY, DECREASED TO EVERY THIRD DAY.
     Route: 058
     Dates: start: 20160209, end: 20160409

REACTIONS (4)
  - Urticaria [Unknown]
  - Injection site urticaria [Unknown]
  - Pruritus generalised [Unknown]
  - Injection site reaction [Unknown]

NARRATIVE: CASE EVENT DATE: 2016
